FAERS Safety Report 13217930 (Version 2)
Quarter: 2017Q1

REPORT INFORMATION
  Report Type: Spontaneous
  Country: US (occurrence: US)
  Receive Date: 20170210
  Receipt Date: 20170310
  Transmission Date: 20170428
  Serious: Yes (Death, Hospitalization, Other)
  Sender: FDA-Public Use
  Company Number: US-BRISTOL-MYERS SQUIBB COMPANY-BMS-2017-010129

PATIENT
  Age: 64 Year
  Sex: Male

DRUGS (1)
  1. OPDIVO [Suspect]
     Active Substance: NIVOLUMAB
     Indication: HEAD AND NECK CANCER
     Dosage: UNK, Q2WK
     Route: 065
     Dates: start: 20160726, end: 20160727

REACTIONS (5)
  - Pneumonia [Fatal]
  - Decreased appetite [Not Recovered/Not Resolved]
  - Weight decreased [Not Recovered/Not Resolved]
  - Immobile [Not Recovered/Not Resolved]
  - Diaphragmalgia [Not Recovered/Not Resolved]

NARRATIVE: CASE EVENT DATE: 20160726
